FAERS Safety Report 8366415-4 (Version None)
Quarter: 2012Q2

REPORT INFORMATION
  Report Type: 
  Country: None (occurrence: None)
  Receive Date: 20120517
  Receipt Date: 20120509
  Transmission Date: 20120825
  Serious: Yes (Hospitalization)
  Sender: FDA-Public Use
  Company Number: IT-PFIZER INC-2012117291

PATIENT
  Age: 87 Year
  Sex: Female

DRUGS (6)
  1. SIMVASTATIN [Concomitant]
     Dosage: UNK
  2. LEVOTHYROXINE SODIUM [Concomitant]
     Dosage: UNK
  3. CORDARONE [Suspect]
     Indication: VENTRICULAR ARRHYTHMIA
     Dosage: 1 DF, SINGLE
     Route: 048
     Dates: start: 20120402, end: 20120402
  4. ISOSORBIDE MONONITRATE [Suspect]
     Indication: ANGINA PECTORIS
     Dosage: 20 MG, SINGLE
     Route: 048
     Dates: start: 20120402, end: 20120402
  5. ASPIRIN [Concomitant]
     Dosage: UNK
  6. FELDENE FAST [Concomitant]
     Dosage: UNK

REACTIONS (1)
  - SYNCOPE [None]
